FAERS Safety Report 24706657 (Version 1)
Quarter: 2024Q4

REPORT INFORMATION
  Report Type: Spontaneous
  Country: US (occurrence: None)
  Receive Date: 20241206
  Receipt Date: 20241206
  Transmission Date: 20250115
  Serious: No
  Sender: Public
  Company Number: None

PATIENT
  Age: 23 Year
  Sex: Female

DRUGS (1)
  1. XDEMVY [Suspect]
     Active Substance: LOTILANER
     Indication: Demodex blepharitis
     Dosage: ONE DROP TO BOTH EYES BID OPHTHALMIC?
     Route: 047
     Dates: start: 20241009, end: 20241121

REACTIONS (1)
  - Eye pain [None]

NARRATIVE: CASE EVENT DATE: 20241030
